FAERS Safety Report 8461627-3 (Version None)
Quarter: 2012Q2

REPORT INFORMATION
  Report Type: 
  Country: None (occurrence: None)
  Receive Date: 20120625
  Receipt Date: 20120615
  Transmission Date: 20120825
  Serious: Yes (Other)
  Sender: FDA-Public Use
  Company Number: PHFR2012GB001137

PATIENT
  Sex: Male

DRUGS (7)
  1. CLOZARIL [Suspect]
     Dosage: 450 MG, DAILY
     Route: 048
  2. AMISULPRIDE [Concomitant]
     Indication: SCHIZOPHRENIA
     Dosage: 500 MG, DAILY
     Route: 048
  3. VITAMIN B COMPLEX CAP [Concomitant]
     Dosage: 1 DF, DAILY
     Route: 048
  4. CLOZARIL [Suspect]
     Indication: SCHIZOPHRENIA
     Route: 048
     Dates: start: 20030804
  5. PROCYCLIDINE HYDROCHLORIDE 2MG TAB [Concomitant]
     Indication: EXTRAPYRAMIDAL DISORDER
     Dosage: 10 MG, DAILY
     Route: 048
  6. THIAMINE [Concomitant]
     Dosage: 100 MG, DAILY
     Route: 048
  7. OMEPRAZOLE [Concomitant]
     Indication: GASTROOESOPHAGEAL REFLUX DISEASE
     Dosage: 40 MG, UNK

REACTIONS (4)
  - UROSEPSIS [None]
  - PLATELET COUNT INCREASED [None]
  - PROSTATOMEGALY [None]
  - INFECTION [None]
